FAERS Safety Report 17944028 (Version 2)
Quarter: 2020Q3

REPORT INFORMATION
  Report Type: Spontaneous
  Country: NL (occurrence: GB)
  Receive Date: 20200625
  Receipt Date: 20200710
  Transmission Date: 20201103
  Serious: Yes (Life-Threatening, Hospitalization, Other)
  Sender: FDA-Public Use
  Company Number: GB-FRESENIUS KABI-FK202006120

PATIENT
  Age: 34 Year
  Sex: Female
  Weight: 70 kg

DRUGS (10)
  1. TINZAPARIN [Concomitant]
     Active Substance: TINZAPARIN
     Indication: DEEP VEIN THROMBOSIS
     Dates: start: 20200208
  2. CITALOPRAM [Concomitant]
     Active Substance: CITALOPRAM HYDROBROMIDE
     Indication: DEPRESSION
     Dates: start: 20200410
  3. METHOTREXATE SODIUM. [Suspect]
     Active Substance: METHOTREXATE SODIUM
     Indication: PRODUCT USED FOR UNKNOWN INDICATION
     Dosage: 23900 MG IN 1000 ML NACL 0.9 PERCENT
     Route: 065
  4. ENOXOLONE/POVIDONE/HYALURONATE SODIUM [Concomitant]
     Indication: MUCOSAL INFLAMMATION
     Dates: start: 20200507
  5. PARACETAMOL [Concomitant]
     Active Substance: ACETAMINOPHEN
     Indication: PAIN
     Dates: start: 20200507
  6. OXETACAINE [Concomitant]
     Active Substance: OXETHAZAINE
     Indication: MUCOSAL INFLAMMATION
     Dates: start: 20200507
  7. SODIUM CHLORIDE (MANUFACTURER UNKNOWN) [Suspect]
     Active Substance: SODIUM CHLORIDE
     Indication: PRODUCT USED FOR UNKNOWN INDICATION
     Dosage: 0.9 PERCENT
     Route: 065
  8. METHOTREXATE SODIUM. [Suspect]
     Active Substance: METHOTREXATE SODIUM
     Dosage: 21500 MG, EVERY 5 WEEKS, 4 HOUR INFUSION; TOTAL CHEMO CYCLE LENGTH WAS 4 DAYS
     Route: 065
     Dates: start: 20200504
  9. MORPHINE [Concomitant]
     Active Substance: MORPHINE
     Indication: PAIN
     Dates: start: 20200507
  10. BENZYDAMINE HYDROCHLORIDE [Concomitant]
     Active Substance: BENZYDAMINE HYDROCHLORIDE
     Indication: MUCOSAL INFLAMMATION
     Dates: start: 20200507

REACTIONS (5)
  - Intraocular pressure increased [Unknown]
  - Visual impairment [Unknown]
  - Headache [Unknown]
  - Leukoencephalopathy [Recovering/Resolving]
  - Intracranial pressure increased [Unknown]

NARRATIVE: CASE EVENT DATE: 20200507
